FAERS Safety Report 11354857 (Version 3)
Quarter: 2016Q1

REPORT INFORMATION
  Report Type: Spontaneous
  Country: US (occurrence: US)
  Receive Date: 20150807
  Receipt Date: 20160210
  Transmission Date: 20160525
  Serious: No
  Sender: FDA-Public Use
  Company Number: US-JNJFOC-20150623408

PATIENT
  Age: 8 Year
  Sex: Male

DRUGS (10)
  1. RISPERDAL [Suspect]
     Active Substance: RISPERIDONE
     Indication: ATTENTION DEFICIT/HYPERACTIVITY DISORDER
     Dosage: 0.25 TO 0.5 MG
     Route: 048
     Dates: start: 200603, end: 200901
  2. RISPERIDONE. [Suspect]
     Active Substance: RISPERIDONE
     Indication: PRODUCT USED FOR UNKNOWN INDICATION
     Route: 048
  3. RISPERDAL [Suspect]
     Active Substance: RISPERIDONE
     Indication: ANGER
     Dosage: 0.25 TO 0.5 MG
     Route: 048
     Dates: start: 200603, end: 200901
  4. RISPERDAL [Suspect]
     Active Substance: RISPERIDONE
     Indication: IRRITABILITY
     Dosage: 0.25 TO 0.5 MG
     Route: 048
     Dates: start: 200603, end: 200901
  5. RISPERDAL [Suspect]
     Active Substance: RISPERIDONE
     Indication: MOOD SWINGS
     Route: 048
  6. RISPERDAL [Suspect]
     Active Substance: RISPERIDONE
     Indication: IRRITABILITY
     Route: 048
  7. RISPERDAL [Suspect]
     Active Substance: RISPERIDONE
     Indication: ANGER
     Route: 048
  8. RISPERDAL [Suspect]
     Active Substance: RISPERIDONE
     Indication: ATTENTION DEFICIT/HYPERACTIVITY DISORDER
     Route: 048
  9. RISPERIDONE. [Suspect]
     Active Substance: RISPERIDONE
     Indication: ATTENTION DEFICIT/HYPERACTIVITY DISORDER
     Dosage: 0.5 TO 1 MG
     Route: 048
     Dates: start: 2008, end: 2009
  10. RISPERDAL [Suspect]
     Active Substance: RISPERIDONE
     Indication: MOOD SWINGS
     Dosage: 0.25 TO 0.5 MG
     Route: 048
     Dates: start: 200603, end: 200901

REACTIONS (4)
  - Emotional disorder [Unknown]
  - Weight increased [Unknown]
  - Increased appetite [Unknown]
  - Gynaecomastia [Unknown]

NARRATIVE: CASE EVENT DATE: 20050628
